FAERS Safety Report 6744504-5 (Version None)
Quarter: 2010Q2

REPORT INFORMATION
  Report Type: 
  Country: None (occurrence: None)
  Receive Date: 20100526
  Receipt Date: 20100526
  Transmission Date: 20101027
  Serious: No
  Sender: FDA-Public Use
  Company Number: None

PATIENT
  Age: 72 Year
  Sex: Male
  Weight: 95 kg

DRUGS (1)
  1. WARFARIN [Suspect]
     Indication: DEEP VEIN THROMBOSIS
     Dosage: 5 MG EVERY DAY PO
     Route: 048
     Dates: start: 20100421, end: 20100506

REACTIONS (5)
  - ERYTHEMA [None]
  - HEADACHE [None]
  - PAIN IN EXTREMITY [None]
  - PRODUCT SUBSTITUTION ISSUE [None]
  - VISION BLURRED [None]
